FAERS Safety Report 12851370 (Version 1)
Quarter: 2016Q4

REPORT INFORMATION
  Report Type: Spontaneous
  Country: US (occurrence: US)
  Receive Date: 20161016
  Receipt Date: 20161016
  Transmission Date: 20170207
  Serious: Yes (Hospitalization, Other)
  Sender: FDA-Public Use
  Company Number: US-TEVA-702431USA

PATIENT
  Age: 63 Year
  Sex: Female

DRUGS (3)
  1. NICOTINE. [Suspect]
     Active Substance: NICOTINE
  2. CHANTIX [Suspect]
     Active Substance: VARENICLINE TARTRATE
     Route: 065
  3. NICOTINE. [Suspect]
     Active Substance: NICOTINE
     Route: 065

REACTIONS (5)
  - Disability [Unknown]
  - Respiratory disorder [Unknown]
  - Pulmonary pain [None]
  - Respiratory tract oedema [Unknown]
  - Lyme disease [Unknown]
